FAERS Safety Report 21243001 (Version 1)
Quarter: 2022Q3

REPORT INFORMATION
  Report Type: Report from Study
  Country: GB (occurrence: GB)
  Receive Date: 20220823
  Receipt Date: 20220823
  Transmission Date: 20221027
  Serious: Yes (Death)
  Sender: FDA-Public Use
  Company Number: GB-ELI_LILLY_AND_COMPANY-GB202208009304

PATIENT

DRUGS (2)
  1. GEMCITABINE HYDROCHLORIDE [Suspect]
     Active Substance: GEMCITABINE HYDROCHLORIDE
     Indication: Non-small cell lung cancer
     Dosage: 1000 MG/M2, DAYS 1 AND 8
     Route: 065
  2. BERZOSERTIB [Concomitant]
     Active Substance: BERZOSERTIB
     Indication: Non-small cell lung cancer
     Dosage: 210 MG/M2, DAYS 2 AND 9
     Route: 042

REACTIONS (5)
  - Haemoptysis [Fatal]
  - Hypovolaemic shock [Fatal]
  - Cardiac arrest [Fatal]
  - Lower respiratory tract infection [Fatal]
  - Dyspnoea [Fatal]
